FAERS Safety Report 13199547 (Version 2)
Quarter: 2017Q1

REPORT INFORMATION
  Report Type: Spontaneous
  Country: JP (occurrence: JP)
  Receive Date: 20170208
  Receipt Date: 20170210
  Transmission Date: 20170428
  Serious: Yes (Hospitalization)
  Sender: FDA-Public Use
  Company Number: US-BAUSCH-BL-2017-003306

PATIENT
  Age: 26 Year
  Sex: Male

DRUGS (1)
  1. TALION [Suspect]
     Active Substance: BEPOTASTINE
     Indication: URTICARIA
     Route: 048
     Dates: start: 20170118, end: 20170123

REACTIONS (1)
  - Drug-induced liver injury [Recovering/Resolving]

NARRATIVE: CASE EVENT DATE: 20170122
